FAERS Safety Report 11090827 (Version 1)
Quarter: 2015Q2

REPORT INFORMATION
  Report Type: Spontaneous
  Country: NO (occurrence: NO)
  Receive Date: 20150505
  Receipt Date: 20150505
  Transmission Date: 20150821
  Serious: Yes (Other)
  Sender: FDA-Public Use
  Company Number: NO-SA-2015SA056821

PATIENT
  Age: 63 Year
  Sex: Male

DRUGS (3)
  1. ARAVA [Suspect]
     Active Substance: LEFLUNOMIDE
     Indication: RHEUMATOID ARTHRITIS
     Route: 048
     Dates: start: 201502
  2. CALCIGRAN FORTE [Concomitant]
     Dosage: 1000 MG CALCIUM/ 800 IU VITAMIN D?FORTE
     Route: 048
     Dates: start: 20150210
  3. PREDNISOLON [Concomitant]
     Active Substance: PREDNISOLONE
     Indication: RHEUMATOID ARTHRITIS
     Route: 048
     Dates: start: 20150210

REACTIONS (1)
  - Deafness unilateral [Recovering/Resolving]

NARRATIVE: CASE EVENT DATE: 2015
